FAERS Safety Report 7599691-6 (Version None)
Quarter: 2011Q3

REPORT INFORMATION
  Report Type: 
  Country: None (occurrence: None)
  Receive Date: 20110711
  Receipt Date: 20110706
  Transmission Date: 20111222
  Serious: Yes (Hospitalization, Other)
  Sender: FDA-Public Use
  Company Number: US-BAYER-2011-058823

PATIENT
  Sex: Female

DRUGS (2)
  1. SORAFENIB (RAF KINASE INHIBITOR) [Suspect]
  2. SORAFENIB (RAF KINASE INHIBITOR) [Suspect]
     Indication: RENAL CELL CARCINOMA
     Dosage: 400 MG, BID
     Dates: start: 20110601, end: 20110630

REACTIONS (8)
  - AURICULAR SWELLING [None]
  - SWELLING FACE [None]
  - ARTHRALGIA [None]
  - ABDOMINAL PAIN [None]
  - CONSTIPATION [None]
  - BURNING SENSATION [None]
  - INSOMNIA [None]
  - HEADACHE [None]
